FAERS Safety Report 26073875 (Version 1)
Quarter: 2025Q4

REPORT INFORMATION
  Report Type: Spontaneous
  Country: IN (occurrence: IN)
  Receive Date: 20251121
  Receipt Date: 20251121
  Transmission Date: 20260118
  Serious: Yes (Other)
  Sender: ROCHE
  Company Number: IN-ROCHE-10000437427

PATIENT

DRUGS (1)
  1. OCREVUS [Suspect]
     Active Substance: OCRELIZUMAB
     Indication: Primary progressive multiple sclerosis
     Route: 065

REACTIONS (5)
  - Immunosuppression [Unknown]
  - Urinary tract infection [Unknown]
  - Lymphoedema [Unknown]
  - Skin ulcer [Unknown]
  - Cellulitis [Unknown]
